FAERS Safety Report 21563496 (Version 1)
Quarter: 2022Q4

REPORT INFORMATION
  Report Type: Spontaneous
  Country: JP (occurrence: JP)
  Receive Date: 20221108
  Receipt Date: 20221108
  Transmission Date: 20230113
  Serious: Yes (Other)
  Sender: FDA-Public Use
  Company Number: JP-SUN PHARMACEUTICAL INDUSTRIES LTD-2022RR-362436

PATIENT
  Age: 88 Year
  Sex: Male

DRUGS (4)
  1. IMATINIB [Suspect]
     Active Substance: IMATINIB
     Indication: Philadelphia positive chronic myeloid leukaemia
     Dosage: 100 MILLIGRAM, UNK
     Route: 065
  2. IMATINIB [Suspect]
     Active Substance: IMATINIB
     Dosage: 200 MILLIGRAM, UNK
     Route: 065
  3. AMLODIPINE [Concomitant]
     Active Substance: AMLODIPINE BESYLATE
     Indication: Hypertension
     Dosage: 5 MILLIGRAM, DAILY
     Route: 048
  4. AMLODIPINE [Concomitant]
     Active Substance: AMLODIPINE BESYLATE
     Dosage: 10 MILLIGRAM, DAILY
     Route: 048

REACTIONS (5)
  - Renal impairment [Unknown]
  - Dyspnoea [Recovering/Resolving]
  - Malaise [Unknown]
  - Physical deconditioning [Unknown]
  - Pulmonary oedema [Recovering/Resolving]
